FAERS Safety Report 14629700 (Version 1)
Quarter: 2018Q1

REPORT INFORMATION
  Report Type: Spontaneous
  Country: FR (occurrence: FR)
  Receive Date: 20180313
  Receipt Date: 20180313
  Transmission Date: 20180509
  Serious: Yes (Hospitalization, Other)
  Sender: FDA-Public Use
  Company Number: FR-MERCK KGAA-2043594

PATIENT
  Age: 50 Year
  Sex: Male

DRUGS (2)
  1. NOVOTHYROX [Suspect]
     Active Substance: LEVOTHYROXINE SODIUM
     Indication: BASEDOW^S DISEASE
     Dates: end: 2017
  2. THYROZOL [Concomitant]
     Active Substance: METHIMAZOLE
     Dates: start: 201609

REACTIONS (20)
  - Feeling abnormal [None]
  - Fear [None]
  - Fatigue [None]
  - Abdominal pain [None]
  - Thyroxine increased [None]
  - Arrhythmia [None]
  - Nausea [None]
  - Headache [None]
  - Chest discomfort [None]
  - Loss of personal independence in daily activities [None]
  - Apathy [None]
  - Impatience [None]
  - Blood pressure increased [None]
  - Thyroid stimulating immunoglobulin [None]
  - Discomfort [None]
  - Anxiety [None]
  - Restlessness [None]
  - Hypertension [None]
  - Asthenia [None]
  - Palpitations [None]

NARRATIVE: CASE EVENT DATE: 20170203
